FAERS Safety Report 4683642-8 (Version None)
Quarter: 2005Q2

REPORT INFORMATION
  Report Type: 
  Country: None (occurrence: None)
  Receive Date: 20050602
  Receipt Date: 20050228
  Transmission Date: 20051028
  Serious: No
  Sender: FDA-Public Use
  Company Number: USA041285661

PATIENT
  Age: 49 Year
  Sex: Female
  Weight: 63 kg

DRUGS (13)
  1. CYMBALTA [Suspect]
     Indication: DEPRESSION
     Dosage: 30 MG DAY
     Dates: start: 20041101, end: 20041101
  2. WELLBUTRIN [Concomitant]
  3. VOLMAX [Concomitant]
  4. SINGULAIR (MONTELUKAST) [Concomitant]
  5. ADVAIR [Concomitant]
  6. ALBUTEROL [Concomitant]
  7. VIREAD [Concomitant]
  8. ZIAGEN [Concomitant]
  9. VIRAMUNE [Concomitant]
  10. ESTRACE [Concomitant]
  11. NEURONTIN (GABAPENTIN PFIZER) [Concomitant]
  12. ULTRACET [Concomitant]
  13. VIOXX [Concomitant]

REACTIONS (3)
  - CHEST PAIN [None]
  - DIZZINESS [None]
  - DYSPNOEA [None]
